FAERS Safety Report 17977527 (Version 1)
Quarter: 2020Q3

REPORT INFORMATION
  Report Type: Spontaneous
  Country: QA (occurrence: QA)
  Receive Date: 20200703
  Receipt Date: 20200703
  Transmission Date: 20201103
  Serious: Yes (Hospitalization, Other)
  Sender: FDA-Public Use
  Company Number: QA-ACCORD-188699

PATIENT
  Age: 62 Year
  Sex: Female

DRUGS (7)
  1. ACETYLSALICYLIC ACID [Concomitant]
     Active Substance: ASPIRIN
     Indication: ANTIPLATELET THERAPY
     Dosage: ALSO RECEIVED 100 MG DAILY
  2. HEPARIN [Concomitant]
     Active Substance: HEPARIN SODIUM
     Indication: PERCUTANEOUS CORONARY INTERVENTION
     Dosage: ONE DOSE OF INTRAVENOUS UNFRACTIONATED 7000 UNITS
     Route: 042
  3. RAMIPRIL. [Concomitant]
     Active Substance: RAMIPRIL
     Indication: PERCUTANEOUS CORONARY INTERVENTION
  4. EPTIFIBATIDE. [Suspect]
     Active Substance: EPTIFIBATIDE
     Indication: PERCUTANEOUS CORONARY INTERVENTION
     Dosage: THEN 2?UG/KG/MIN INFUSION, INFUSION WAS TO BE CONTINUED FOR 18 HOURS
     Route: 040
  5. CLOPIDOGREL [Concomitant]
     Active Substance: CLOPIDOGREL BISULFATE
     Indication: ANTIPLATELET THERAPY
     Dosage: ALSO RECEIVED 75 MG DAILY
  6. METOPROLOL. [Concomitant]
     Active Substance: METOPROLOL
     Indication: PERCUTANEOUS CORONARY INTERVENTION
     Dosage: TWICE DAILY
  7. ROSUVASTATIN/ROSUVASTATIN CALCIUM [Concomitant]
     Active Substance: ROSUVASTATIN CALCIUM
     Indication: PERCUTANEOUS CORONARY INTERVENTION

REACTIONS (2)
  - Thrombocytopenia [Recovering/Resolving]
  - Vascular stent thrombosis [Recovering/Resolving]
